FAERS Safety Report 15584757 (Version 8)
Quarter: 2019Q4

REPORT INFORMATION
  Report Type: Spontaneous
  Country: CA (occurrence: CA)
  Receive Date: 20181105
  Receipt Date: 20191230
  Transmission Date: 20200122
  Serious: Yes (Other)
  Sender: FDA-Public Use
  Company Number: CA-ABBVIE-18K-028-2540179-00

PATIENT
  Age: 25 Year
  Sex: Female

DRUGS (28)
  1. REMICADE [Suspect]
     Active Substance: INFLIXIMAB
     Indication: PRODUCT USED FOR UNKNOWN INDICATION
     Route: 042
  2. REMICADE [Suspect]
     Active Substance: INFLIXIMAB
     Dosage: POWDER FOR SOLUTION INTRAVENOUS
     Route: 042
  3. DICLOFENAC SODIUM. [Suspect]
     Active Substance: DICLOFENAC SODIUM
     Route: 065
  4. REMICADE [Suspect]
     Active Substance: INFLIXIMAB
     Route: 042
  5. REMICADE [Suspect]
     Active Substance: INFLIXIMAB
     Route: 042
  6. DICLOFENAC [Suspect]
     Active Substance: DICLOFENAC
     Route: 065
  7. PREDNISONE. [Suspect]
     Active Substance: PREDNISONE
     Indication: PRODUCT USED FOR UNKNOWN INDICATION
     Dosage: 1.0 DOSAGE FORMS
     Route: 048
  8. REMICADE [Suspect]
     Active Substance: INFLIXIMAB
     Route: 042
  9. XELJANZ [Concomitant]
     Active Substance: TOFACITINIB CITRATE
     Indication: PRODUCT USED FOR UNKNOWN INDICATION
  10. HUMIRA [Suspect]
     Active Substance: ADALIMUMAB
     Indication: PRODUCT USED FOR UNKNOWN INDICATION
     Route: 058
  11. DICLOFENAC [Suspect]
     Active Substance: DICLOFENAC
     Indication: PRODUCT USED FOR UNKNOWN INDICATION
     Route: 065
  12. REMICADE [Suspect]
     Active Substance: INFLIXIMAB
     Route: 042
  13. SULFASALAZINE. [Suspect]
     Active Substance: SULFASALAZINE
     Indication: PSORIATIC ARTHROPATHY
     Route: 065
  14. METHOTREXATE. [Suspect]
     Active Substance: METHOTREXATE
     Indication: RHEUMATOID ARTHRITIS
     Dosage: 1.0 DOSAGE FORMS
     Route: 048
  15. METHOTREXATE. [Suspect]
     Active Substance: METHOTREXATE
     Indication: PSORIATIC ARTHROPATHY
     Route: 048
  16. REMICADE [Suspect]
     Active Substance: INFLIXIMAB
     Route: 042
  17. DICLOFENAC POTASSIUM. [Suspect]
     Active Substance: DICLOFENAC POTASSIUM
     Indication: PRODUCT USED FOR UNKNOWN INDICATION
     Route: 065
  18. ENBREL [Suspect]
     Active Substance: ETANERCEPT
     Indication: RHEUMATOID ARTHRITIS
     Route: 058
  19. ENBREL [Suspect]
     Active Substance: ETANERCEPT
     Indication: PSORIATIC ARTHROPATHY
  20. ACTEMRA [Suspect]
     Active Substance: TOCILIZUMAB
     Route: 042
  21. REMICADE [Suspect]
     Active Substance: INFLIXIMAB
     Route: 042
  22. SULFASALAZINE. [Suspect]
     Active Substance: SULFASALAZINE
     Indication: RHEUMATOID ARTHRITIS
     Route: 048
  23. ETANERCEPT [Suspect]
     Active Substance: ETANERCEPT
     Indication: RHEUMATOID ARTHRITIS
     Route: 058
  24. REMICADE [Suspect]
     Active Substance: INFLIXIMAB
     Route: 042
  25. SIMPONI [Suspect]
     Active Substance: GOLIMUMAB
     Indication: PRODUCT USED FOR UNKNOWN INDICATION
     Route: 058
  26. DICLOFENAC SODIUM. [Suspect]
     Active Substance: DICLOFENAC SODIUM
     Indication: PRODUCT USED FOR UNKNOWN INDICATION
     Route: 065
  27. ACTEMRA [Suspect]
     Active Substance: TOCILIZUMAB
     Indication: PRODUCT USED FOR UNKNOWN INDICATION
     Route: 042
  28. INFLIXIMAB [Suspect]
     Active Substance: INFLIXIMAB
     Indication: PRODUCT USED FOR UNKNOWN INDICATION
     Route: 042

REACTIONS (5)
  - Rheumatoid arthritis [Unknown]
  - Drug resistance [Unknown]
  - Pneumonitis [Unknown]
  - Therapeutic product effect decreased [Unknown]
  - Herpes zoster [Unknown]
